FAERS Safety Report 9238259 (Version 1)
Quarter: 2013Q1

REPORT INFORMATION
  Report Type: Spontaneous
  Country: US (occurrence: None)
  Receive Date: 20121107
  Receipt Date: 20121107
  Transmission Date: 20140127
  Serious: Yes (Other)
  Sender: FDA-Public Use
  Company Number: 2012-01325

PATIENT
  Age: 17 Year
  Sex: Female

DRUGS (6)
  1. LISINOPRIL (UNKNOWN) [Suspect]
     Indication: PRODUCT USED FOR UNKNOWN INDICATION
  2. MIDAZOLAM (UNKNOWN) [Concomitant]
  3. FENTANYL (UNKNOWN) [Concomitant]
  4. LIDOCAINE (UNKNOWN) [Concomitant]
  5. OXYCODONE/ACETAMINOPHEN (UNKNOWN) [Concomitant]
  6. EPINEPHRINE (UNKNOWN) [Concomitant]

REACTIONS (1)
  - Lip swelling [None]
